FAERS Safety Report 16973718 (Version 5)
Quarter: 2020Q1

REPORT INFORMATION
  Report Type: Spontaneous
  Country: US (occurrence: US)
  Receive Date: 20191030
  Receipt Date: 20200103
  Transmission Date: 20200409
  Serious: No
  Sender: FDA-Public Use
  Company Number: US-PFIZER INC-2019468763

PATIENT
  Age: 66 Year
  Sex: Female
  Weight: 73.97 kg

DRUGS (4)
  1. METAXALONE. [Suspect]
     Active Substance: METAXALONE
     Dosage: 400 MG, 3X/DAY(THREE TIMES DAILY)
     Route: 048
  2. METAXALONE. [Suspect]
     Active Substance: METAXALONE
     Dosage: 800 MG, 3X/DAY
     Route: 048
     Dates: start: 201909
  3. METAXALONE. [Suspect]
     Active Substance: METAXALONE
     Dosage: 0.5 DF, UNK [CUTTING IT IN HALF TO 400MG]
  4. NAPROSYN [Suspect]
     Active Substance: NAPROXEN
     Dosage: UNK

REACTIONS (8)
  - Drug ineffective [Unknown]
  - Somnolence [Unknown]
  - Faeces discoloured [Unknown]
  - Dizziness [Unknown]
  - Wrong technique in product usage process [Unknown]
  - Off label use [Unknown]
  - Feeling abnormal [Unknown]
  - Rash [Unknown]
